FAERS Safety Report 7551698-0 (Version None)
Quarter: 2011Q2

REPORT INFORMATION
  Report Type: 
  Country: None (occurrence: None)
  Receive Date: 20110609
  Receipt Date: 20110524
  Transmission Date: 20111010
  Serious: Yes (Hospitalization)
  Sender: FDA-Public Use
  Company Number: 2011MA006474

PATIENT
  Age: 6 Year
  Sex: Male

DRUGS (4)
  1. PHENYTOIN [Concomitant]
  2. HEPARIN [Concomitant]
  3. LEVETIRACETAM [Suspect]
     Indication: CONVULSION
     Dosage: 500 MG; BID;
  4. WARFARIN SODIUM [Concomitant]

REACTIONS (5)
  - PLATELET DESTRUCTION INCREASED [None]
  - PETECHIAE [None]
  - MUCOSAL HAEMORRHAGE [None]
  - MEGAKARYOCYTES INCREASED [None]
  - THROMBOCYTOPENIA [None]
